FAERS Safety Report 8835137 (Version 1)
Quarter: 2012Q4

REPORT INFORMATION
  Report Type: 
  Country: UG (occurrence: UG)
  Receive Date: 20121011
  Receipt Date: 20121011
  Transmission Date: 20130627
  Serious: Yes (Death, Hospitalization, Other)
  Sender: FDA-Public Use
  Company Number: UG-PFIZER INC-2012249155

PATIENT
  Age: 35 Year
  Sex: Male

DRUGS (10)
  1. ZIDOVUDINE [Suspect]
     Indication: ANTIRETROVIRAL THERAPY
     Dosage: UNK
  2. FLUCONAZOLE [Suspect]
     Indication: PROPHYLAXIS
     Dosage: 400 mg, 1x/day
  3. FLUCONAZOLE [Suspect]
     Dosage: 200 mg, 1x/day
  4. FLUCONAZOLE [Suspect]
     Dosage: 800 mg, 1x/day
  5. FLUCONAZOLE [Suspect]
     Dosage: 400 mg, 1x/day
  6. LAMIVUDINE [Suspect]
     Indication: ANTIRETROVIRAL THERAPY
     Route: 065
  7. EFAVIRENZ [Suspect]
     Indication: ANTIRETROVIRAL THERAPY
     Dosage: UNK
     Route: 065
  8. PREDNISOLONE [Suspect]
     Indication: IMMUNE RECONSTITUTION SYNDROME
     Dosage: 60 mg, 1x/day
  9. AMPHOTERICIN B [Concomitant]
     Dosage: 0.7 mg/kg,1 D
  10. BACTRIM [Concomitant]
     Indication: PROPHYLAXIS
     Dosage: 1 D, UNK
     Route: 065

REACTIONS (28)
  - Immune reconstitution inflammatory syndrome [Fatal]
  - Cryptococcosis [Fatal]
  - Condition aggravated [Unknown]
  - Meningitis cryptococcal [Unknown]
  - Neurocysticercosis [Unknown]
  - Echinococciasis [Unknown]
  - Hydrocephalus [Unknown]
  - Headache [Unknown]
  - Photophobia [Unknown]
  - Neck pain [Unknown]
  - Vomiting [Recovering/Resolving]
  - CSF protein increased [Unknown]
  - Malaise [Unknown]
  - Decreased appetite [Unknown]
  - Weight decreased [Unknown]
  - Lethargy [Unknown]
  - CD4 lymphocytes increased [Unknown]
  - Dizziness [Unknown]
  - Abnormal behaviour [Unknown]
  - Logorrhoea [Unknown]
  - Speech disorder [Unknown]
  - Hallucination, visual [Unknown]
  - Disturbance in attention [Unknown]
  - Disturbance in attention [Unknown]
  - Disorientation [Unknown]
  - Gait disturbance [Unknown]
  - Urinary incontinence [Unknown]
  - Pathogen resistance [Unknown]
